FAERS Safety Report 6366856-0 (Version None)
Quarter: 2009Q3

REPORT INFORMATION
  Report Type: 
  Country: None (occurrence: None)
  Receive Date: 20090921
  Receipt Date: 20090909
  Transmission Date: 20100115
  Serious: Yes (Death)
  Sender: FDA-Public Use
  Company Number: US-MYLANLABS-2009S1009410

PATIENT
  Age: 17 Year
  Sex: Male
  Weight: 117.94 kg

DRUGS (4)
  1. FENTANYL TRANSDERMAL SYSTEM [Suspect]
     Dosage: NOT APPLICABLE
     Route: 062
     Dates: start: 20090523, end: 20090524
  2. AMBIEN [Concomitant]
  3. ADDERALL 10 [Concomitant]
  4. PROZAC [Concomitant]

REACTIONS (2)
  - ACCIDENTAL OVERDOSE [None]
  - INTENTIONAL DRUG MISUSE [None]
